FAERS Safety Report 8491420-7 (Version None)
Quarter: 2012Q3

REPORT INFORMATION
  Report Type: 
  Country: None (occurrence: None)
  Receive Date: 20120706
  Receipt Date: 20120627
  Transmission Date: 20120928
  Serious: Yes (Other)
  Sender: FDA-Public Use
  Company Number: JP-VERTEX PHARMACEUTICALS INC.-AE-2012-005095

PATIENT
  Age: 48 Year
  Sex: Female

DRUGS (9)
  1. RIBAVIRIN [Concomitant]
     Indication: HEPATITIS C
     Route: 048
     Dates: start: 20120111, end: 20120214
  2. HALICON [Concomitant]
     Route: 048
     Dates: start: 20120424
  3. TELAVIC (TELAPREVIR) [Suspect]
     Indication: HEPATITIS C
     Route: 048
     Dates: start: 20120111, end: 20120404
  4. PEGINTERFERON ALFA-2A [Concomitant]
     Indication: HEPATITIS C
     Route: 058
     Dates: start: 20120111, end: 20120619
  5. RIBAVIRIN [Concomitant]
     Route: 048
     Dates: start: 20120313, end: 20120402
  6. LENDORMIN [Concomitant]
     Route: 048
     Dates: end: 20120423
  7. RIBAVIRIN [Concomitant]
     Route: 048
     Dates: start: 20120403, end: 20120626
  8. ALPRAZOLAM [Concomitant]
     Route: 048
  9. RIBAVIRIN [Concomitant]
     Route: 048
     Dates: start: 20120215, end: 20120312

REACTIONS (2)
  - NEUTROPHIL COUNT DECREASED [None]
  - WHITE BLOOD CELL COUNT DECREASED [None]
